FAERS Safety Report 5597592-6 (Version None)
Quarter: 2008Q1

REPORT INFORMATION
  Report Type: 
  Country: None (occurrence: None)
  Receive Date: 20080121
  Receipt Date: 20080111
  Transmission Date: 20080703
  Serious: Yes (Other)
  Sender: FDA-Public Use
  Company Number: B0503262A

PATIENT
  Age: 83 Year
  Sex: Female
  Weight: 71.6 kg

DRUGS (13)
  1. VENTOLIN [Suspect]
     Indication: BRADYCARDIA
     Dosage: .2MG FOUR TIMES PER DAY
     Route: 055
     Dates: start: 20070916, end: 20071009
  2. AUGMENTIN '125' [Suspect]
     Indication: DRUG USE FOR UNKNOWN INDICATION
     Dosage: 625MG TWICE PER DAY
     Route: 048
     Dates: start: 20070917, end: 20070923
  3. AMARYL [Suspect]
     Indication: DRUG USE FOR UNKNOWN INDICATION
     Dosage: 3MG PER DAY
     Route: 048
     Dates: start: 20070101, end: 20070913
  4. ZYPREXA [Suspect]
     Indication: DRUG USE FOR UNKNOWN INDICATION
     Dosage: 7.5MG PER DAY
     Route: 048
     Dates: start: 20070101, end: 20070912
  5. NORVASC [Suspect]
     Indication: DRUG USE FOR UNKNOWN INDICATION
     Dosage: 5MG PER DAY
     Route: 048
     Dates: start: 20070924, end: 20070926
  6. PERENTEROL [Concomitant]
     Dosage: 250MG TWICE PER DAY
     Route: 065
     Dates: start: 20070912, end: 20070920
  7. CLEXANE [Concomitant]
     Dosage: 40MG PER DAY
     Route: 058
     Dates: start: 20070912, end: 20071001
  8. DAFALGAN [Concomitant]
     Dosage: 1G AS REQUIRED
     Route: 048
     Dates: start: 20070912
  9. FOLVITE [Concomitant]
     Dosage: 5MG PER DAY
     Route: 048
     Dates: start: 20070913, end: 20070923
  10. HYDROXOCOBALAMIN ACETATE [Concomitant]
     Dosage: 1000MCG TWO TIMES PER WEEK
     Route: 058
     Dates: start: 20070914, end: 20071016
  11. BENERVA [Concomitant]
     Dosage: 300MG PER DAY
     Route: 065
     Dates: start: 20070914, end: 20070918
  12. MG 5-LONGORAL [Concomitant]
     Route: 065
     Dates: start: 20070922, end: 20070927
  13. ZOLPIDEM [Concomitant]
     Dosage: 10MG PER DAY
     Route: 065
     Dates: start: 20070912

REACTIONS (7)
  - DRUG INTERACTION [None]
  - ELECTROCARDIOGRAM QT PROLONGED [None]
  - EXTRASYSTOLES [None]
  - HYPOGLYCAEMIA [None]
  - OFF LABEL USE [None]
  - RASH MACULO-PAPULAR [None]
  - TOXIC SKIN ERUPTION [None]
